FAERS Safety Report 8367890-1 (Version None)
Quarter: 2012Q1

REPORT INFORMATION
  Report Type: 
  Country: None (occurrence: None)
  Receive Date: 20120323
  Receipt Date: 20111012
  Transmission Date: 20120608
  Serious: Yes (Hospitalization)
  Sender: FDA-Public Use
  Company Number: 163-21880-11080159

PATIENT
  Age: 66 Year
  Sex: Male
  Weight: 93.8946 kg

DRUGS (15)
  1. ASPIRIN [Concomitant]
  2. ZOCOR [Concomitant]
  3. REVLIMID [Suspect]
     Indication: MULTIPLE MYELOMA
     Dosage: SEE IMAGE
     Route: 048
     Dates: start: 20101201
  4. REVLIMID [Suspect]
     Indication: MULTIPLE MYELOMA
     Dosage: SEE IMAGE
     Route: 048
     Dates: start: 20110701
  5. REVLIMID [Suspect]
     Indication: MULTIPLE MYELOMA
     Dosage: SEE IMAGE
     Route: 048
     Dates: start: 20111001
  6. REVLIMID [Suspect]
     Indication: MULTIPLE MYELOMA
     Dosage: SEE IMAGE
     Route: 048
     Dates: start: 20110101
  7. REVLIMID [Suspect]
     Indication: MULTIPLE MYELOMA
     Dosage: SEE IMAGE
     Route: 048
     Dates: start: 20110801
  8. REVLIMID [Suspect]
     Indication: MULTIPLE MYELOMA
     Dosage: SEE IMAGE
     Route: 048
     Dates: start: 20110801
  9. REVLIMID [Suspect]
     Indication: MULTIPLE MYELOMA
     Dosage: SEE IMAGE
     Route: 048
     Dates: start: 20101001
  10. COREG [Concomitant]
  11. VELCADE [Concomitant]
  12. COENZYME Q10 [Concomitant]
  13. COZAAR [Concomitant]
  14. DEXAMETHASONE [Concomitant]
  15. ACYCLOVIR [Concomitant]

REACTIONS (5)
  - NEOPLASM PROGRESSION [None]
  - ATRIAL FIBRILLATION [None]
  - PANCYTOPENIA [None]
  - MULTIPLE MYELOMA [None]
  - NO THERAPEUTIC RESPONSE [None]
